FAERS Safety Report 18442347 (Version 1)
Quarter: 2020Q4

REPORT INFORMATION
  Report Type: Spontaneous
  Country: GB (occurrence: GB)
  Receive Date: 20201029
  Receipt Date: 20201029
  Transmission Date: 20210114
  Serious: Yes (Life-Threatening, Hospitalization, Other)
  Sender: FDA-Public Use
  Company Number: GB-HIKMA PHARMACEUTICALS USA INC.-GB-H14001-20-52399

PATIENT
  Age: 29 Year
  Sex: Male

DRUGS (13)
  1. FYCOMPA [Suspect]
     Active Substance: PERAMPANEL
     Dates: start: 202007, end: 20200822
  2. ESLICARBAZEPINE [Concomitant]
     Active Substance: ESLICARBAZEPINE
     Indication: TEMPORAL LOBE EPILEPSY
     Dosage: 400 MG IN AM, 800 MG IN PM
     Route: 065
  3. FYCOMPA [Suspect]
     Active Substance: PERAMPANEL
     Dates: start: 202006, end: 202007
  4. PREDNISOLONE. [Concomitant]
     Active Substance: PREDNISOLONE
     Indication: PRODUCT USED FOR UNKNOWN INDICATION
     Dosage: UNKNOWN
     Route: 065
  5. FYCOMPA [Suspect]
     Active Substance: PERAMPANEL
     Indication: TEMPORAL LOBE EPILEPSY
     Route: 048
     Dates: start: 202005, end: 202006
  6. FYCOMPA [Suspect]
     Active Substance: PERAMPANEL
     Dosage: UNKNOWN DOSE
     Dates: start: 20200823, end: 20200823
  7. METHYLPREDNISOLONE. [Suspect]
     Active Substance: METHYLPREDNISOLONE
     Indication: AUTOIMMUNE DISORDER
     Route: 042
     Dates: start: 20200820, end: 202008
  8. FYCOMPA [Suspect]
     Active Substance: PERAMPANEL
     Indication: PARTIAL SEIZURES
     Dates: start: 20200128, end: 202005
  9. CLOBAZAM. [Suspect]
     Active Substance: CLOBAZAM
     Indication: TEMPORAL LOBE EPILEPSY
     Dosage: 10 MG IN AM, 20 MG IN PM
     Route: 048
     Dates: end: 20200822
  10. CLOBAZAM. [Suspect]
     Active Substance: CLOBAZAM
     Indication: PARTIAL SEIZURES
     Dosage: DOSE UNKNOWN
     Dates: start: 20200823, end: 20200823
  11. ESLICARBAZEPINE [Concomitant]
     Active Substance: ESLICARBAZEPINE
     Indication: PARTIAL SEIZURES
  12. BRIVARACETAM [Concomitant]
     Active Substance: BRIVARACETAM
     Indication: PARTIAL SEIZURES
     Route: 065
  13. BRIVARACETAM [Concomitant]
     Active Substance: BRIVARACETAM
     Indication: TEMPORAL LOBE EPILEPSY

REACTIONS (8)
  - Suicidal ideation [Recovered/Resolved with Sequelae]
  - Abnormal behaviour [Recovering/Resolving]
  - Anger [Recovering/Resolving]
  - Psychotic disorder [Recovered/Resolved]
  - Hallucination, auditory [Recovering/Resolving]
  - Suicide attempt [Recovered/Resolved]
  - Somnolence [Recovering/Resolving]
  - Intentional overdose [Recovered/Resolved]

NARRATIVE: CASE EVENT DATE: 202005
